FAERS Safety Report 4819066-X (Version None)
Quarter: 2005Q4

REPORT INFORMATION
  Report Type: 
  Country: None (occurrence: None)
  Receive Date: 20051103
  Receipt Date: 20050929
  Transmission Date: 20060501
  Serious: Yes (Disabling)
  Sender: FDA-Public Use
  Company Number: GB-AVENTIS-200519466GDDC

PATIENT
  Age: 66 Year
  Sex: Female

DRUGS (3)
  1. ARAVA [Suspect]
     Indication: ARTHRITIS
     Route: 048
     Dates: end: 20050701
  2. FLUCLOXACILLIN [Suspect]
     Indication: ARTHRITIS INFECTIVE
     Dosage: DOSE: UNK
     Route: 042
     Dates: start: 20050101, end: 20050301
  3. FLUCLOXACILLIN [Concomitant]

REACTIONS (4)
  - ARTHRITIS INFECTIVE [None]
  - COLITIS COLLAGENOUS [None]
  - DIARRHOEA [None]
  - WEIGHT DECREASED [None]
